FAERS Safety Report 20109597 (Version 4)
Quarter: 2022Q3

REPORT INFORMATION
  Report Type: Spontaneous
  Country: JP (occurrence: JP)
  Receive Date: 20211124
  Receipt Date: 20220706
  Transmission Date: 20221026
  Serious: Yes (Life-Threatening, Hospitalization, Other)
  Sender: FDA-Public Use
  Company Number: JP-ONO-2021JP029128

PATIENT
  Age: 72 Year
  Sex: Male
  Weight: 47.9 kg

DRUGS (7)
  1. OPDIVO [Suspect]
     Active Substance: NIVOLUMAB
     Indication: Gastric cancer
     Dosage: 240 MILLIGRAM
     Route: 041
     Dates: start: 20210804, end: 20210915
  2. TAMSULOSIN HYDROCHLORIDE [Concomitant]
     Active Substance: TAMSULOSIN HYDROCHLORIDE
     Indication: Product used for unknown indication
     Route: 065
  3. KETOPROFEN [Concomitant]
     Active Substance: KETOPROFEN
     Indication: Product used for unknown indication
     Dosage: TAPE (INCLUDING POULTICE)
     Route: 062
  4. HEMOPORISON [Concomitant]
     Indication: Product used for unknown indication
     Route: 061
  5. CELECOXIB [Concomitant]
     Active Substance: CELECOXIB
     Indication: Product used for unknown indication
     Route: 065
  6. ASPIRIN [Concomitant]
     Active Substance: ASPIRIN
     Indication: Product used for unknown indication
     Route: 065
  7. PREGABALIN [Concomitant]
     Active Substance: PREGABALIN
     Indication: Product used for unknown indication
     Dosage: ORALLY DISINTEGRATING
     Route: 048

REACTIONS (2)
  - Adrenal insufficiency [Recovering/Resolving]
  - Renal failure [Unknown]

NARRATIVE: CASE EVENT DATE: 20211101
